FAERS Safety Report 9245273 (Version 1)
Quarter: 2013Q1

REPORT INFORMATION
  Report Type: Spontaneous
  Country: US (occurrence: None)
  Receive Date: 20121130
  Receipt Date: 20121130
  Transmission Date: 20140127
  Serious: Yes (Other)
  Sender: FDA-Public Use
  Company Number: 1110USA02637

PATIENT
  Age: 60 Year
  Sex: Female

DRUGS (6)
  1. FOSAMAX (ALENDRONATE SODIUM) [Suspect]
     Indication: OSTEOPOROSIS
  2. ACTONEL (RISEDORONATE SODIUM) [Concomitant]
  3. RECLAST (ZOLEDRONIC ACID) [Suspect]
  4. BONIVA (IBANDRONATE SODIUM) [Concomitant]
  5. METCORTEN (PREDNISONE) [Concomitant]
  6. HYDROXYCHLOROQUINE SULFATE) [Concomitant]

REACTIONS (1)
  - Osteonecrosis of jaw [None]
